FAERS Safety Report 6347588-1 (Version None)
Quarter: 2009Q3

REPORT INFORMATION
  Report Type: 
  Country: None (occurrence: None)
  Receive Date: 20090909
  Receipt Date: 20090909
  Transmission Date: 20100115
  Serious: Yes (Other)
  Sender: FDA-Public Use
  Company Number: None

PATIENT
  Age: 20 Year
  Sex: Female
  Weight: 59.5 kg

DRUGS (2)
  1. BUPIVACAINE [Suspect]
     Indication: EPIDURAL ANAESTHESIA
     Dates: start: 20090905
  2. BUPIVACAINE HYDROCHLORIDE AND EPINEPHRINE [Suspect]

REACTIONS (4)
  - ANAESTHETIC COMPLICATION [None]
  - BLOOD PRESSURE DECREASED [None]
  - DRUG EXPOSURE DURING PREGNANCY [None]
  - HEART RATE DECREASED [None]
